FAERS Safety Report 10654679 (Version 1)
Quarter: 2014Q4

REPORT INFORMATION
  Report Type: Spontaneous
  Country: US (occurrence: None)
  Receive Date: 20141215
  Receipt Date: 20141215
  Transmission Date: 20150529
  Serious: No
  Sender: FDA-Public Use
  Company Number: None

PATIENT
  Sex: Female

DRUGS (1)
  1. SPRYCEL [Suspect]
     Active Substance: DASATINIB
     Indication: COLON CANCER
     Dosage: 1 CAP DAILY, DAILY, PO
     Route: 048
     Dates: start: 20140403, end: 20140717

REACTIONS (1)
  - Pleural effusion [None]
